FAERS Safety Report 8506885-1 (Version None)
Quarter: 2012Q3

REPORT INFORMATION
  Report Type: 
  Country: None (occurrence: None)
  Receive Date: 20120712
  Receipt Date: 20120710
  Transmission Date: 20120928
  Serious: Yes (Hospitalization, Other)
  Sender: FDA-Public Use
  Company Number: TH-BAYER-2012-068227

PATIENT
  Age: 58 Year
  Sex: Female

DRUGS (1)
  1. GADAVIST [Suspect]
     Indication: NUCLEAR MAGNETIC RESONANCE IMAGING ABDOMINAL
     Dosage: 7.5 ML, ONCE
     Route: 042
     Dates: start: 20120710, end: 20120710

REACTIONS (6)
  - BRADYCARDIA [None]
  - BLOOD PRESSURE IMMEASURABLE [None]
  - HYPOAESTHESIA [None]
  - ERYTHEMA [None]
  - SYNCOPE [None]
  - OCULAR HYPERAEMIA [None]
